FAERS Safety Report 14926612 (Version 1)
Quarter: 2018Q2

REPORT INFORMATION
  Report Type: Spontaneous
  Country: GB (occurrence: GB)
  Receive Date: 20180523
  Receipt Date: 20180523
  Transmission Date: 20180711
  Serious: Yes (Other)
  Sender: FDA-Public Use
  Company Number: GB-TEVA-2018-GB-894362

PATIENT
  Age: 37 Year
  Sex: Female
  Weight: 60 kg

DRUGS (3)
  1. KEPPRA [Concomitant]
     Active Substance: LEVETIRACETAM
     Dosage: 1000 MILLIGRAM DAILY;
  2. LAMOTRIGINE. [Suspect]
     Active Substance: LAMOTRIGINE
     Dosage: 525 MILLIGRAM DAILY; 250MG TWICE A DAY + 25MG EXTRA MORNING GIVING ADVERSE REACTION.
  3. PREGABALIN. [Concomitant]
     Active Substance: PREGABALIN
     Dosage: 400 MILLIGRAM DAILY;

REACTIONS (1)
  - Eyelid disorder [Recovered/Resolved]
